FAERS Safety Report 12209842 (Version 1)
Quarter: 2016Q1

REPORT INFORMATION
  Report Type: Report from Study
  Country: ZA (occurrence: ZA)
  Receive Date: 20160325
  Receipt Date: 20160325
  Transmission Date: 20160526
  Serious: Yes (Life-Threatening, Hospitalization)
  Sender: FDA-Public Use
  Company Number: ZA-ROCHE-1648567

PATIENT
  Age: 56 Year
  Sex: Female
  Weight: 47 kg

DRUGS (49)
  1. ADRIAMYCIN [Suspect]
     Active Substance: DOXORUBICIN HYDROCHLORIDE
     Dosage: LAST DOSE ON :11/AUG/2015
     Route: 042
     Dates: start: 20150721, end: 20150721
  2. SPECTRAPAIN [Concomitant]
     Dosage: 2 TABLETS 3 TIMES DAILY WHEN NECESSARY
     Route: 048
     Dates: start: 20150609
  3. AZT [Concomitant]
     Active Substance: ZIDOVUDINE
     Route: 048
     Dates: start: 20150224
  4. TRAMAL [Concomitant]
     Active Substance: TRAMADOL
     Route: 048
     Dates: start: 20150617, end: 20150622
  5. LASIX [Concomitant]
     Active Substance: FUROSEMIDE
     Route: 048
     Dates: start: 20151215
  6. CYCLOPHOSPHAMIDE. [Suspect]
     Active Substance: CYCLOPHOSPHAMIDE
     Dosage: LAST DOSE ON :11/AUG/2015
     Route: 042
     Dates: start: 20150721, end: 20150721
  7. CYCLOPHOSPHAMIDE. [Suspect]
     Active Substance: CYCLOPHOSPHAMIDE
     Dosage: DATE OF LAST DOSE PRIOR TO SAE: 15/DEC/2015
     Route: 041
     Dates: start: 20151215
  8. ETOPOSIDE. [Suspect]
     Active Substance: ETOPOSIDE
     Dosage: DATE OF LAST DOSE PRIOR TO SAE: 15/DEC/2015
     Route: 041
     Dates: start: 20151215
  9. PREDNISONE. [Suspect]
     Active Substance: PREDNISONE
     Indication: NON-HODGKIN^S LYMPHOMA
     Dosage: 60MG ONCE A DAY FOR 7 DAYS
     Route: 048
     Dates: start: 20150609, end: 20150615
  10. PHENERGAN [Suspect]
     Active Substance: PROMETHAZINE HYDROCHLORIDE
     Indication: NON-HODGKIN^S LYMPHOMA
     Dosage: FOR 24 HOURS?DATE OF LAST DOSE PRIOR TO SAE: 15/DEC/2015
     Route: 048
     Dates: start: 20151215
  11. ALLOPURINOL. [Concomitant]
     Active Substance: ALLOPURINOL
     Route: 048
     Dates: start: 20150617
  12. KEFLEX [Concomitant]
     Active Substance: CEPHALEXIN
     Dosage: 500MG 6 HOURLY A DAY
     Route: 048
     Dates: start: 20150811, end: 20150815
  13. SPECTRAPAIN [Concomitant]
     Dosage: TAKE TWO TABLETS THREE TIMES DAILY WHEN NECESSRY
     Route: 065
     Dates: start: 20151215
  14. ETOPOSIDE. [Suspect]
     Active Substance: ETOPOSIDE
     Indication: NON-HODGKIN^S LYMPHOMA
     Route: 042
     Dates: start: 20150609, end: 20150609
  15. SOLU-CORTEF [Suspect]
     Active Substance: HYDROCORTISONE SODIUM SUCCINATE
     Dosage: DATE OF LAST DOSE PRIOR TO SAE: 15/DEC/2015
     Route: 041
     Dates: start: 20151215
  16. ALLOPURINOL. [Concomitant]
     Active Substance: ALLOPURINOL
     Route: 065
     Dates: start: 20151215
  17. TRAMAL [Concomitant]
     Active Substance: TRAMADOL
     Route: 048
     Dates: start: 20150609
  18. HYDROCHLOROTHIAZIDE. [Concomitant]
     Active Substance: HYDROCHLOROTHIAZIDE
     Route: 048
     Dates: start: 20150721
  19. ZOFRAN [Suspect]
     Active Substance: ONDANSETRON HYDROCHLORIDE
     Indication: NON-HODGKIN^S LYMPHOMA
     Route: 042
     Dates: start: 20150609, end: 20150609
  20. ZOFRAN [Suspect]
     Active Substance: ONDANSETRON HYDROCHLORIDE
     Route: 042
     Dates: start: 20150721, end: 20150721
  21. LANZOR [Concomitant]
     Active Substance: LANSOPRAZOLE
     Route: 048
     Dates: start: 20150609
  22. LANZOR [Concomitant]
     Active Substance: LANSOPRAZOLE
     Route: 048
  23. LANZOR [Concomitant]
     Active Substance: LANSOPRAZOLE
     Route: 048
     Dates: start: 20150721
  24. RITUXIMAB [Suspect]
     Active Substance: RITUXIMAB
     Indication: NON-HODGKIN^S LYMPHOMA
     Dosage: DATE OF LAST DOSE PRIOR TO SAE: 15/DEC/2015
     Route: 041
     Dates: start: 20151215
  25. CYCLOPHOSPHAMIDE. [Suspect]
     Active Substance: CYCLOPHOSPHAMIDE
     Indication: NON-HODGKIN^S LYMPHOMA
     Route: 042
     Dates: start: 20150609, end: 20150609
  26. ADRIAMYCIN [Suspect]
     Active Substance: DOXORUBICIN HYDROCHLORIDE
     Indication: NON-HODGKIN^S LYMPHOMA
     Route: 042
     Dates: start: 20150609, end: 20150609
  27. VINCRISTINE [Suspect]
     Active Substance: VINCRISTINE
     Dosage: LAST DOSE ON :11/AUG/2015
     Route: 042
     Dates: start: 20150721, end: 20150721
  28. SOLU-CORTEF [Suspect]
     Active Substance: HYDROCORTISONE SODIUM SUCCINATE
     Dosage: LAST DOSE ON :11/AUG/2015
     Route: 042
     Dates: start: 20150721, end: 20150721
  29. PREDNISONE. [Suspect]
     Active Substance: PREDNISONE
     Dosage: 60MG ONCE A DAY FOR 7 DAYS
     Route: 048
     Dates: start: 20150721, end: 20150721
  30. PANADO [Suspect]
     Active Substance: ACETAMINOPHEN
     Indication: NON-HODGKIN^S LYMPHOMA
     Dosage: TAKE 2 TABLETS SIX-HOURLY FOR 24 HOURS
     Route: 048
     Dates: start: 20151215
  31. ALLOPURINOL. [Concomitant]
     Active Substance: ALLOPURINOL
     Route: 048
     Dates: start: 20150609
  32. AMLODIPINE [Concomitant]
     Active Substance: AMLODIPINE BESYLATE
     Route: 048
     Dates: start: 20150823
  33. TRAMAL [Concomitant]
     Active Substance: TRAMADOL
     Route: 048
     Dates: start: 20150721
  34. NORVASC [Concomitant]
     Active Substance: AMLODIPINE BESYLATE
     Route: 065
     Dates: start: 20151215
  35. ETOPOSIDE. [Suspect]
     Active Substance: ETOPOSIDE
     Dosage: LAST DOSE ON :11/AUG/2015
     Route: 042
     Dates: start: 20150721, end: 20150721
  36. SOLU-CORTEF [Suspect]
     Active Substance: HYDROCORTISONE SODIUM SUCCINATE
     Indication: NON-HODGKIN^S LYMPHOMA
     Route: 042
     Dates: start: 20150609, end: 20150609
  37. PREDNISONE. [Suspect]
     Active Substance: PREDNISONE
     Dosage: FOR 7 DAYS
     Route: 048
     Dates: start: 20151215
  38. ALLOPURINOL. [Concomitant]
     Active Substance: ALLOPURINOL
     Route: 048
     Dates: start: 20150823
  39. AMLODIPINE [Concomitant]
     Active Substance: AMLODIPINE BESYLATE
     Route: 048
     Dates: start: 20150609
  40. PANADO [Concomitant]
     Active Substance: ACETAMINOPHEN
     Dosage: 2 TABLETS 3 TIMES A DAY
     Route: 048
     Dates: start: 20150721
  41. VINCRISTINE [Suspect]
     Active Substance: VINCRISTINE
     Route: 041
     Dates: start: 20151215
  42. ZOFRAN [Suspect]
     Active Substance: ONDANSETRON HYDROCHLORIDE
     Indication: NON-HODGKIN^S LYMPHOMA
     Dosage: FOR 3 DAYS
     Route: 048
     Dates: start: 20151215
  43. AMLODIPINE [Concomitant]
     Active Substance: AMLODIPINE BESYLATE
     Route: 048
     Dates: start: 20150617
  44. 3TC [Concomitant]
     Active Substance: LAMIVUDINE
     Route: 048
     Dates: start: 20150224
  45. ADRIAMYCIN [Suspect]
     Active Substance: DOXORUBICIN HYDROCHLORIDE
     Dosage: DATE OF LAST DOSE PRIOR TO SAE: 15/DEC/2015
     Route: 041
     Dates: start: 20151215
  46. VINCRISTINE [Suspect]
     Active Substance: VINCRISTINE
     Indication: NON-HODGKIN^S LYMPHOMA
     Route: 042
     Dates: start: 20150609, end: 20150609
  47. ZOFRAN [Suspect]
     Active Substance: ONDANSETRON HYDROCHLORIDE
     Dosage: DATE OF LAST DOSE PRIOR TO SAE: 15/DEC/2015
     Route: 041
     Dates: start: 20151215
  48. AMLODIPINE [Concomitant]
     Active Substance: AMLODIPINE BESYLATE
     Route: 048
     Dates: start: 20150721
  49. HYDROCHLOROTHIAZIDE. [Concomitant]
     Active Substance: HYDROCHLOROTHIAZIDE
     Route: 065
     Dates: start: 20151215

REACTIONS (9)
  - Vomiting [Recovered/Resolved]
  - Dyspepsia [Recovered/Resolved]
  - Neutropenia [Recovered/Resolved]
  - Hypokalaemia [Recovered/Resolved]
  - Febrile neutropenia [Recovered/Resolved]
  - Vomiting [Recovered/Resolved]
  - Nausea [Recovered/Resolved]
  - Neutropenia [Recovered/Resolved]
  - Nausea [Recovered/Resolved]

NARRATIVE: CASE EVENT DATE: 20150616
